FAERS Safety Report 11874539 (Version 1)
Quarter: 2015Q4

REPORT INFORMATION
  Report Type: Spontaneous
  Country: NZ (occurrence: None)
  Receive Date: 20151228
  Receipt Date: 20151228
  Transmission Date: 20160305
  Serious: Yes (Hospitalization, Disabling, Other)
  Sender: FDA-Public Use
  Company Number: None

PATIENT
  Age: 62 Year
  Sex: Female
  Weight: 100 kg

DRUGS (3)
  1. LOPIX [Suspect]
     Active Substance: UNSPECIFIED INGREDIENT
  2. EPILM STATIN Q10 [Concomitant]
  3. LIPITOR [Suspect]
     Active Substance: ATORVASTATIN CALCIUM
     Indication: BLOOD CHOLESTEROL ABNORMAL
     Route: 048

REACTIONS (3)
  - Glucose tolerance impaired [None]
  - Lymphadenopathy [None]
  - Rosacea [None]

NARRATIVE: CASE EVENT DATE: 20151224
